FAERS Safety Report 7046820-9 (Version None)
Quarter: 2010Q4

REPORT INFORMATION
  Report Type: 
  Country: None (occurrence: None)
  Receive Date: 20101015
  Receipt Date: 20101007
  Transmission Date: 20110411
  Serious: Yes (Other)
  Sender: FDA-Public Use
  Company Number: US-JNJFOC-20100504376

PATIENT
  Sex: Female

DRUGS (5)
  1. LEVAQUIN [Suspect]
     Indication: INFECTION
     Route: 048
  2. LEVAQUIN [Suspect]
     Indication: SINUS DISORDER
     Route: 048
  3. LEVAQUIN [Suspect]
     Indication: NASOPHARYNGITIS
     Route: 048
  4. LEVAQUIN [Suspect]
     Indication: BACTERIAL INFECTION
     Route: 048
  5. PREDNISONE [Suspect]
     Indication: ANTIINFLAMMATORY THERAPY

REACTIONS (5)
  - MENISCUS LESION [None]
  - MUSCLE RUPTURE [None]
  - NEUROPATHY PERIPHERAL [None]
  - TENDON DISORDER [None]
  - TENDONITIS [None]
